FAERS Safety Report 8444977-6 (Version None)
Quarter: 2012Q2

REPORT INFORMATION
  Report Type: 
  Country: None (occurrence: None)
  Receive Date: 20120618
  Receipt Date: 20120606
  Transmission Date: 20120825
  Serious: Yes (Hospitalization, Other)
  Sender: FDA-Public Use
  Company Number: US-ELI_LILLY_AND_COMPANY-US201108000684

PATIENT
  Sex: Female

DRUGS (14)
  1. DIAVAN [Concomitant]
     Indication: MYOCARDIAL INFARCTION
  2. FORTEO [Suspect]
     Indication: OSTEOPOROSIS
     Dosage: 20 UG, QD
     Route: 065
  3. LIPITOR [Concomitant]
  4. ANALGESICS [Concomitant]
     Indication: PAIN
  5. NEXIUM [Concomitant]
  6. SYNTHROID [Concomitant]
  7. FORTEO [Suspect]
     Dosage: 20 UG, QD
     Route: 065
     Dates: end: 20120301
  8. FORTEO [Suspect]
     Dosage: 20 UG, UNK
     Dates: start: 20120315
  9. INSULIN [Concomitant]
  10. ANALGESICS [Concomitant]
  11. ASPIRIN [Concomitant]
     Indication: PRODUCT USED FOR UNKNOWN INDICATION
  12. VICODIN [Concomitant]
  13. AZATHIOPRINE [Concomitant]
  14. PREDNISONE [Concomitant]

REACTIONS (18)
  - PRECANCEROUS MUCOSAL LESION [None]
  - RHEUMATOID ARTHRITIS [None]
  - HAEMOGLOBIN DECREASED [None]
  - GALLBLADDER OPERATION [None]
  - WEIGHT DECREASED [None]
  - DIZZINESS [None]
  - HAEMORRHAGE [None]
  - ABDOMINAL DISCOMFORT [None]
  - ARTHRALGIA [None]
  - PANCREATIC INJURY [None]
  - NAUSEA [None]
  - PERIARTHRITIS [None]
  - PANCREATITIS [None]
  - VOMITING [None]
  - DIABETES MELLITUS [None]
  - ABDOMINAL PAIN [None]
  - FEELING ABNORMAL [None]
  - PAIN IN EXTREMITY [None]
